FAERS Safety Report 7966591-9 (Version None)
Quarter: 2011Q4

REPORT INFORMATION
  Report Type: 
  Country: None (occurrence: None)
  Receive Date: 20111209
  Receipt Date: 20111128
  Transmission Date: 20120403
  Serious: Yes (Hospitalization)
  Sender: FDA-Public Use
  Company Number: NL-BIOGENIDEC-2011BI014795

PATIENT
  Age: 65 Year
  Sex: Female

DRUGS (2)
  1. TYSABRI [Suspect]
     Indication: MULTIPLE SCLEROSIS
     Route: 042
     Dates: start: 20080627
  2. CARBAMAZEPINE [Concomitant]
     Indication: PAIN

REACTIONS (3)
  - HIP FRACTURE [None]
  - JOINT DISLOCATION [None]
  - FALL [None]
